FAERS Safety Report 17277178 (Version 1)
Quarter: 2020Q1

REPORT INFORMATION
  Report Type: Spontaneous
  Country: US (occurrence: US)
  Receive Date: 20191227
  Receipt Date: 20191227
  Transmission Date: 20200409
  Serious: No
  Sender: FDA-Public Use
  Company Number: None

PATIENT
  Age: 59 Year
  Sex: Male

DRUGS (4)
  1. LEUCOVORIN. [Concomitant]
     Active Substance: LEUCOVORIN
  2. OXALIPLATIN. [Concomitant]
     Active Substance: OXALIPLATIN
  3. ERBITUX [Suspect]
     Active Substance: CETUXIMAB
     Dosage: ?          OTHER FREQUENCY:OTHER;?
     Route: 042
     Dates: start: 201912
  4. FLUOROURACIL. [Concomitant]
     Active Substance: FLUOROURACIL

REACTIONS (1)
  - Off label use [None]

NARRATIVE: CASE EVENT DATE: 20191227
